FAERS Safety Report 5684012-6 (Version None)
Quarter: 2008Q1

REPORT INFORMATION
  Report Type: 
  Country: None (occurrence: None)
  Receive Date: 20080328
  Receipt Date: 20080326
  Transmission Date: 20080703
  Serious: Yes (Other)
  Sender: FDA-Public Use
  Company Number: US-ASTRAZENECA-2007UW15814

PATIENT
  Age: 77 Year
  Sex: Female
  Weight: 65.3 kg

DRUGS (4)
  1. FASLODEX [Suspect]
     Indication: BREAST CANCER METASTATIC
     Route: 030
     Dates: start: 20030101
  2. ANTIHYPERTENSIVE [Concomitant]
  3. ZOMETA [Concomitant]
  4. LOTREL [Concomitant]
     Dosage: 5/10

REACTIONS (4)
  - BONE DISORDER [None]
  - HAEMOGLOBIN DECREASED [None]
  - PRURITUS [None]
  - VITAMIN D DEFICIENCY [None]
